FAERS Safety Report 14403530 (Version 5)
Quarter: 2018Q2

REPORT INFORMATION
  Report Type: Report from Study
  Country: US (occurrence: US)
  Receive Date: 20180117
  Receipt Date: 20180515
  Transmission Date: 20180711
  Serious: Yes (Death, Hospitalization, Other)
  Sender: FDA-Public Use
  Company Number: US-ACTELION-A-NJ2018-165756

PATIENT
  Age: 48 Year
  Sex: Female
  Weight: 66.21 kg

DRUGS (4)
  1. SILDENAFIL. [Concomitant]
     Active Substance: SILDENAFIL
  2. OPSUMIT [Suspect]
     Active Substance: MACITENTAN
     Indication: PULMONARY ARTERIAL HYPERTENSION
     Dosage: 10 MG, QD
     Route: 048
     Dates: start: 20160505, end: 20180506
  3. REMODULIN [Concomitant]
     Active Substance: TREPROSTINIL
  4. TYVASO [Suspect]
     Active Substance: TREPROSTINIL
     Indication: PRODUCT USED FOR UNKNOWN INDICATION
     Dosage: 15 BREATHS, QID
     Route: 055
     Dates: start: 20171117

REACTIONS (12)
  - Headache [Not Recovered/Not Resolved]
  - Dyspnoea [Unknown]
  - Nausea [Unknown]
  - Cardiac failure acute [Recovered/Resolved]
  - Pain in jaw [Not Recovered/Not Resolved]
  - Rhinovirus infection [Fatal]
  - Obstructive pancreatitis [Recovered/Resolved]
  - Pneumonia escherichia [Fatal]
  - Blood bilirubin increased [Unknown]
  - Pulmonary hypertension [Recovered/Resolved]
  - Fluid overload [Recovered/Resolved]
  - Decreased appetite [Unknown]

NARRATIVE: CASE EVENT DATE: 20171130
